FAERS Safety Report 5671052-6 (Version None)
Quarter: 2008Q1

REPORT INFORMATION
  Report Type: 
  Country: None (occurrence: None)
  Receive Date: 20080318
  Receipt Date: 20080310
  Transmission Date: 20080703
  Serious: Yes (Hospitalization)
  Sender: FDA-Public Use
  Company Number: US-BAXTER-2008BH002229

PATIENT
  Age: 29 Year
  Sex: Female

DRUGS (2)
  1. HEPARIN SODIUM [Suspect]
     Indication: DRUG USE FOR UNKNOWN INDICATION
     Route: 058
     Dates: start: 20071206, end: 20080209
  2. HEPARIN SODIUM [Suspect]
     Route: 058
     Dates: start: 20080212, end: 20080219

REACTIONS (4)
  - DRUG EXPOSURE DURING PREGNANCY [None]
  - DRY SKIN [None]
  - RASH PRURITIC [None]
  - SKIN BURNING SENSATION [None]
